FAERS Safety Report 9001105 (Version 2)
Quarter: 2013Q1

REPORT INFORMATION
  Report Type: Spontaneous
  Country: DE (occurrence: DE)
  Receive Date: 20130107
  Receipt Date: 20130213
  Transmission Date: 20140127
  Serious: Yes (Other)
  Sender: FDA-Public Use
  Company Number: DE-BAYER-2013-001398

PATIENT
  Sex: 0

DRUGS (1)
  1. MIRENA [Suspect]
     Route: 064

REACTIONS (3)
  - Premature baby [None]
  - Foetal growth restriction [None]
  - Exposure during pregnancy [None]
